FAERS Safety Report 21291171 (Version 1)
Quarter: 2022Q3

REPORT INFORMATION
  Report Type: Spontaneous
  Country: US (occurrence: US)
  Receive Date: 20220903
  Receipt Date: 20220903
  Transmission Date: 20221027
  Serious: No
  Sender: FDA-Public Use
  Company Number: US-drreddys-SPO/USA/22/0153557

PATIENT
  Age: 14 Year
  Sex: Female

DRUGS (2)
  1. ACCUTANE [Suspect]
     Active Substance: ISOTRETINOIN
     Indication: Product used for unknown indication
     Dosage: RMA ISSUE DATE: 7 JANUARY 2022 11:35:22 AM, 08 FEBRUARY 2022 11:20:35 AM, 09 MARCH 2022 01:37:43 PM,
  2. ACCUTANE [Suspect]
     Active Substance: ISOTRETINOIN
     Dosage: RMA ISSUE DATE: 11 MAY 2022 04:00:27 PM, 14 JUNE 2022 09:13:29 AM

REACTIONS (1)
  - Adverse drug reaction [Unknown]
